FAERS Safety Report 8177757-X (Version None)
Quarter: 2012Q1

REPORT INFORMATION
  Report Type: 
  Country: None (occurrence: None)
  Receive Date: 20120301
  Receipt Date: 20120216
  Transmission Date: 20120608
  Serious: Yes (Hospitalization)
  Sender: FDA-Public Use
  Company Number: CZ-MYLANLABS-2012S1003615

PATIENT
  Sex: Female

DRUGS (4)
  1. PHENOBARBITAL TAB [Interacting]
     Indication: EPILEPSY
     Dosage: 300 MG/DAY
     Route: 065
  2. PRIMIDONE [Interacting]
     Indication: EPILEPSY
     Route: 065
  3. CARBAMAZEPINE [Interacting]
     Indication: EPILEPSY
     Route: 065
  4. VALPROIC ACID [Suspect]
     Indication: EPILEPSY
     Route: 065

REACTIONS (6)
  - GENERAL PHYSICAL HEALTH DETERIORATION [None]
  - DELIRIUM [None]
  - ALTERED STATE OF CONSCIOUSNESS [None]
  - HALLUCINATION [None]
  - DRUG INTERACTION [None]
  - ANTICONVULSANT DRUG LEVEL ABOVE THERAPEUTIC [None]
